FAERS Safety Report 6596239-X (Version None)
Quarter: 2010Q1

REPORT INFORMATION
  Report Type: 
  Country: None (occurrence: None)
  Receive Date: 20100223
  Receipt Date: 20100209
  Transmission Date: 20100710
  Serious: Yes (Death, Hospitalization)
  Sender: FDA-Public Use
  Company Number: US-SANOFI-AVENTIS-2009SA005804

PATIENT
  Age: 75 Year
  Sex: Male
  Weight: 102 kg

DRUGS (10)
  1. FUROSEMIDE [Suspect]
     Route: 048
     Dates: start: 20080901, end: 20091025
  2. FUROSEMIDE [Suspect]
     Indication: HYPERTENSION
     Route: 048
     Dates: start: 20080901, end: 20091025
  3. DECADRON [Suspect]
     Route: 048
     Dates: start: 20090827
  4. DECADRON [Suspect]
     Dates: end: 20091025
  5. INVESTIGATIONAL DRUG [Concomitant]
     Route: 048
     Dates: start: 20090831, end: 20091024
  6. ALL OTHER THERAPEUTIC PRODUCTS [Concomitant]
     Dosage: 5 DAYS A WEEK X 3 WEEKS
     Dates: start: 20090831
  7. CARDURA /IRE/ [Concomitant]
     Indication: HYPERTENSION
     Route: 048
     Dates: start: 20081007
  8. KEPPRA [Concomitant]
     Route: 048
     Dates: start: 20090824
  9. METOPROLOL TARTRATE [Concomitant]
     Indication: HYPERTENSION
     Route: 048
     Dates: start: 20090408
  10. SPIRONOLACTONE [Concomitant]
     Indication: HYPERTENSION
     Dates: start: 20091016

REACTIONS (5)
  - DEEP VEIN THROMBOSIS [None]
  - DEHYDRATION [None]
  - DYSPNOEA [None]
  - HYPERGLYCAEMIA [None]
  - SHOCK [None]
